FAERS Safety Report 10081656 (Version 4)
Quarter: 2014Q2

REPORT INFORMATION
  Report Type: Spontaneous
  Country: JP (occurrence: JP)
  Receive Date: 20140416
  Receipt Date: 20140529
  Transmission Date: 20141212
  Serious: Yes (Hospitalization)
  Sender: FDA-Public Use
  Company Number: JP-ASTRAZENECA-2014SE25376

PATIENT
  Age: 28698 Day
  Sex: Male
  Weight: 57 kg

DRUGS (1)
  1. NEXIUM [Suspect]
     Indication: EPIGASTRIC DISCOMFORT
     Route: 048
     Dates: start: 2013, end: 20140408

REACTIONS (2)
  - Jaundice [Recovering/Resolving]
  - Malaise [Recovering/Resolving]
